FAERS Safety Report 7250399-6 (Version None)
Quarter: 2011Q1

REPORT INFORMATION
  Report Type: 
  Country: None (occurrence: None)
  Receive Date: 20110128
  Receipt Date: 20110125
  Transmission Date: 20110831
  Serious: Yes (Life-Threatening, Hospitalization, Other)
  Sender: FDA-Public Use
  Company Number: DE-ABBOTT-10P-062-0631534-00

PATIENT
  Sex: Female
  Weight: 50 kg

DRUGS (6)
  1. MESALAMINE [Concomitant]
     Indication: CROHN'S DISEASE
     Route: 048
  2. HUMIRA [Suspect]
     Indication: CROHN'S DISEASE
     Route: 058
     Dates: start: 20080227, end: 20100201
  3. AZATHIOPRINE [Concomitant]
     Indication: CROHN'S DISEASE
     Dates: end: 20090801
  4. FERROSANOL [Concomitant]
     Indication: ANAEMIA
     Dates: start: 20100101
  5. CORTISONE [Concomitant]
     Indication: CROHN'S DISEASE
  6. PREDNISOLONE [Concomitant]
     Indication: CROHN'S DISEASE
     Route: 048

REACTIONS (9)
  - CROHN'S DISEASE [None]
  - SEPSIS [None]
  - IRON DEFICIENCY ANAEMIA [None]
  - ASCITES [None]
  - DERMATITIS ALLERGIC [None]
  - GENERAL PHYSICAL HEALTH DETERIORATION [None]
  - NUCLEAR MAGNETIC RESONANCE IMAGING ABDOMINAL ABNORMAL [None]
  - ANAL FISTULA [None]
  - COMA [None]
